FAERS Safety Report 6376031-1 (Version None)
Quarter: 2009Q3

REPORT INFORMATION
  Report Type: 
  Country: None (occurrence: None)
  Receive Date: 20090921
  Receipt Date: 20090914
  Transmission Date: 20100115
  Serious: No
  Sender: FDA-Public Use
  Company Number: 378455

PATIENT
  Age: 51 Year
  Sex: Male
  Weight: 102 kg

DRUGS (4)
  1. GENTAMICIN [Suspect]
     Dosage: 360 MG, INTRAVENOUS
     Route: 042
     Dates: start: 20090806, end: 20090809
  2. PREDNISOLONE [Concomitant]
  3. ALBUTEROL [Concomitant]
  4. (ZYDOL /00599202/) [Concomitant]

REACTIONS (1)
  - RENAL FAILURE ACUTE [None]
